FAERS Safety Report 8397719-7 (Version None)
Quarter: 2012Q2

REPORT INFORMATION
  Report Type: 
  Country: None (occurrence: None)
  Receive Date: 20120524
  Receipt Date: 20120514
  Transmission Date: 20120825
  Serious: Yes (Life-Threatening, Hospitalization, Other)
  Sender: FDA-Public Use
  Company Number: AUR-APL-2011-04611

PATIENT
  Age: 82 Year
  Sex: Female

DRUGS (8)
  1. ACETYLSALICYLIC ACID SRT [Concomitant]
  2. TRIAMCINOLONE [Concomitant]
  3. LANTUS [Suspect]
     Indication: TYPE 2 DIABETES MELLITUS
     Dosage: 30 IU, UNKNOWN
  4. MEDROL [Concomitant]
  5. METFFORMIN HYDROCHLORIDE [Suspect]
     Indication: TYPE 2 DIABETES MELLITUS
     Dosage: (2000 MG), UNKNOWN
  6. LISINOPRIL AND HYDROCHLOROTHIAZIDE [Suspect]
     Indication: PRODUCT USED FOR UNKNOWN INDICATION
  7. CELEBREX [Suspect]
     Indication: PRODUCT USED FOR UNKNOWN INDICATION
  8. BLINDED THERAPY [Suspect]
     Indication: TYPE 2 DIABETES MELLITUS
     Dates: end: 20100824

REACTIONS (9)
  - UROSEPSIS [None]
  - BRAIN NATRIURETIC PEPTIDE INCREASED [None]
  - DIABETES MELLITUS INADEQUATE CONTROL [None]
  - SYNCOPE [None]
  - PULMONARY CONGESTION [None]
  - RENAL FAILURE ACUTE [None]
  - ESCHERICHIA TEST POSITIVE [None]
  - FLUID OVERLOAD [None]
  - DEHYDRATION [None]
